FAERS Safety Report 8387982-0 (Version None)
Quarter: 2012Q2

REPORT INFORMATION
  Report Type: 
  Country: None (occurrence: None)
  Receive Date: 20120525
  Receipt Date: 20120521
  Transmission Date: 20120825
  Serious: Yes (Hospitalization)
  Sender: FDA-Public Use
  Company Number: PHHY2012SE043771

PATIENT
  Sex: Female

DRUGS (3)
  1. METHERGINE [Suspect]
     Dosage: 0.125 MG, AT A DOSE OF 1,1 MGT
     Route: 048
     Dates: start: 20120410, end: 20120413
  2. METRONIDAZOLE [Suspect]
     Dates: start: 20120410
  3. CEFADROXIL [Suspect]
     Dates: start: 20120410

REACTIONS (2)
  - PARAESTHESIA [None]
  - TRISMUS [None]
